FAERS Safety Report 24573811 (Version 2)
Quarter: 2025Q2

REPORT INFORMATION
  Report Type: Report from Study
  Country: CA (occurrence: CA)
  Receive Date: 20241103
  Receipt Date: 20250425
  Transmission Date: 20250717
  Serious: Yes (Other)
  Sender: JOHNSON AND JOHNSON
  Company Number: CA-JNJFOC-20230812685

PATIENT
  Age: 21 Year
  Sex: Female
  Weight: 58.51 kg

DRUGS (2)
  1. REMICADE [Suspect]
     Active Substance: INFLIXIMAB
     Indication: Crohn^s disease
     Dosage: ON 04-AUG-2023, PATIENT RECEIVED 71ST INFLIXIMAB INFUSION AT 400 MG AND PARTIAL HARVEY-BRADSHAW COMP
     Route: 041
     Dates: start: 20150618
  2. REMICADE [Suspect]
     Active Substance: INFLIXIMAB
     Indication: Colitis ulcerative
     Route: 041
     Dates: start: 20180427, end: 20240926

REACTIONS (7)
  - Fractured coccyx [Recovering/Resolving]
  - Physical assault [Recovering/Resolving]
  - Off label use [Unknown]
  - Abdominal pain [Recovered/Resolved]
  - Ligament sprain [Recovering/Resolving]
  - Soft tissue injury [Recovering/Resolving]
  - Skin infection [Unknown]

NARRATIVE: CASE EVENT DATE: 20150618
